FAERS Safety Report 22148182 (Version 1)
Quarter: 2023Q1

REPORT INFORMATION
  Report Type: Report from Study
  Country: KR (occurrence: KR)
  Receive Date: 20230328
  Receipt Date: 20230328
  Transmission Date: 20230417
  Serious: Yes (Other)
  Sender: FDA-Public Use
  Company Number: KR-JNJFOC-20230369283

PATIENT

DRUGS (10)
  1. REMICADE [Suspect]
     Active Substance: INFLIXIMAB
     Indication: Rheumatoid arthritis
     Route: 041
  2. INFLIXIMAB [Suspect]
     Active Substance: INFLIXIMAB
     Indication: Rheumatoid arthritis
     Route: 065
  3. TOCILIZUMAB [Suspect]
     Active Substance: TOCILIZUMAB
     Indication: Rheumatoid arthritis
     Route: 042
  4. TOCILIZUMAB [Suspect]
     Active Substance: TOCILIZUMAB
     Route: 058
  5. ABATACEPT [Suspect]
     Active Substance: ABATACEPT
     Indication: Rheumatoid arthritis
     Dosage: BODY WEIGHT {60 KG
     Route: 065
  6. ABATACEPT [Suspect]
     Active Substance: ABATACEPT
     Dosage: BODY WEIGHT }60 KG
     Route: 042
  7. ABATACEPT [Suspect]
     Active Substance: ABATACEPT
     Route: 058
  8. TOFACITINIB [Suspect]
     Active Substance: TOFACITINIB
     Indication: Rheumatoid arthritis
     Route: 065
  9. ADALIMUMAB [Suspect]
     Active Substance: ADALIMUMAB
     Indication: Rheumatoid arthritis
     Route: 065
  10. RITUXIMAB [Suspect]
     Active Substance: RITUXIMAB
     Indication: Rheumatoid arthritis
     Route: 065

REACTIONS (22)
  - Pneumonia [Unknown]
  - Atypical mycobacterial infection [Unknown]
  - Hepatitis B reactivation [Unknown]
  - Interstitial lung disease [Unknown]
  - Lung neoplasm malignant [Unknown]
  - Lymphoma [Unknown]
  - Pharyngeal cancer [Unknown]
  - Malignant melanoma [Unknown]
  - Basal cell carcinoma [Unknown]
  - Oesophageal carcinoma [Unknown]
  - Uterine cancer [Unknown]
  - Malignant peritoneal neoplasm [Unknown]
  - Neoplasm malignant [Unknown]
  - Soft tissue neoplasm [Unknown]
  - Acute coronary syndrome [Unknown]
  - Cardiac arrest [Unknown]
  - Myocardial infarction [Unknown]
  - Infection [Unknown]
  - Upper respiratory tract infection [Unknown]
  - Infusion related reaction [Unknown]
  - Herpes zoster [Unknown]
  - Drug ineffective [Unknown]
